FAERS Safety Report 5446901-7 (Version None)
Quarter: 2007Q3

REPORT INFORMATION
  Report Type: 
  Country: None (occurrence: None)
  Receive Date: 20070802
  Receipt Date: 20070524
  Transmission Date: 20080115
  Serious: Yes (Hospitalization)
  Sender: FDA-Public Use
  Company Number: US-JNJFOC-20060902391

PATIENT
  Age: 8 Year
  Sex: Male
  Weight: 33.1 kg

DRUGS (6)
  1. CHILDREN'S MOTRIN [Suspect]
     Indication: PYREXIA
     Dosage: ORAL, AS NECESSARY ORAL
     Route: 048
     Dates: start: 19980101
  2. AUGMENTIN [Suspect]
     Indication: PYREXIA
     Dosage: ORAL
     Route: 048
     Dates: start: 20060129, end: 20060129
  3. AUGMENTIN [Suspect]
     Indication: RESPIRATORY TRACT CONGESTION
     Dosage: ORAL
     Route: 048
     Dates: start: 20060129, end: 20060129
  4. TEGRETOL [Suspect]
     Indication: CONVULSION
     Dosage: ORAL
     Dates: start: 20060116, end: 20060202
  5. OMNICEF [Suspect]
     Indication: PYREXIA
     Dosage: ORAL
     Route: 048
     Dates: start: 20060106
  6. OMNICEF [Suspect]
     Indication: SINUSITIS
     Dosage: ORAL
     Route: 048
     Dates: start: 20060106

REACTIONS (1)
  - TOXIC EPIDERMAL NECROLYSIS [None]
